FAERS Safety Report 17348022 (Version 1)
Quarter: 2020Q1

REPORT INFORMATION
  Report Type: Spontaneous
  Country: US (occurrence: US)
  Receive Date: 20200115
  Receipt Date: 20200115
  Transmission Date: 20200409
  Serious: Yes (Hospitalization)
  Sender: FDA-Public Use
  Company Number: None

PATIENT
  Age: 27 Year
  Sex: Female

DRUGS (8)
  1. CIPROFLOXACIN. [Concomitant]
     Active Substance: CIPROFLOXACIN
  2. PREDNISONE. [Concomitant]
     Active Substance: PREDNISONE
  3. GUAIATUSS AC [Concomitant]
  4. TRIKAFTA [Suspect]
     Active Substance: ELEXACAFTOR\IVACAFTOR\TEZACAFTOR
     Indication: CYSTIC FIBROSIS
     Dosage: ?          OTHER DOSE:2TABS-1 TAB;OTHER FREQUENCY:QAM-QPM;?
     Route: 048
     Dates: start: 20191114
  5. VENTOLIN HFA [Concomitant]
     Active Substance: ALBUTEROL SULFATE
  6. ESCITALOPRAM [Concomitant]
     Active Substance: ESCITALOPRAM OXALATE
  7. HYD POL/CPM [Concomitant]
  8. ASHLYNA [Concomitant]
     Active Substance: ETHINYL ESTRADIOL\LEVONORGESTREL

REACTIONS (2)
  - Pneumonia [None]
  - Therapy cessation [None]

NARRATIVE: CASE EVENT DATE: 20191205
